FAERS Safety Report 6899250-4 (Version None)
Quarter: 2010Q3

REPORT INFORMATION
  Report Type: 
  Country: None (occurrence: None)
  Receive Date: 20100802
  Receipt Date: 20080310
  Transmission Date: 20110219
  Serious: Yes (Other)
  Sender: FDA-Public Use
  Company Number: US-PFIZER INC-2008003013

PATIENT
  Sex: Female

DRUGS (13)
  1. LYRICA [Suspect]
     Indication: NEURALGIA
     Dates: start: 20071027
  2. LYRICA [Suspect]
     Indication: FIBROMYALGIA
  3. MS CONTIN [Concomitant]
  4. NORCO [Concomitant]
  5. DILAUDID [Concomitant]
  6. PROTONIX [Concomitant]
  7. VALIUM [Concomitant]
  8. PREDNISONE [Concomitant]
  9. AMBIEN [Concomitant]
  10. CARDIZEM CD [Concomitant]
  11. EFFEXOR [Concomitant]
  12. GLUCOTROL [Concomitant]
  13. PREMARIN [Concomitant]

REACTIONS (6)
  - MEAN CELL HAEMOGLOBIN CONCENTRATION DECREASED [None]
  - MEAN CELL HAEMOGLOBIN INCREASED [None]
  - MEAN CELL VOLUME INCREASED [None]
  - PLATELET COUNT DECREASED [None]
  - RED CELL DISTRIBUTION WIDTH INCREASED [None]
  - WHITE BLOOD CELL COUNT INCREASED [None]
